FAERS Safety Report 4874490-4 (Version None)
Quarter: 2006Q1

REPORT INFORMATION
  Report Type: 
  Country: None (occurrence: None)
  Receive Date: 20060106
  Receipt Date: 20051128
  Transmission Date: 20060701
  Serious: Yes (Other)
  Sender: FDA-Public Use
  Company Number: JP-ROCHE-426844

PATIENT
  Age: 8 Year
  Sex: Male
  Weight: 30 kg

DRUGS (5)
  1. TAMIFLU [Suspect]
     Route: 048
     Dates: start: 20040227, end: 20040227
  2. ASVERIN [Concomitant]
     Route: 048
     Dates: start: 20040227
  3. MUCOSAL [Concomitant]
     Route: 048
     Dates: start: 20040227
  4. TELGIN G [Concomitant]
     Route: 048
     Dates: start: 20040227
  5. ANHIBA [Concomitant]
     Route: 054
     Dates: start: 20040227

REACTIONS (1)
  - DELIRIUM [None]
